FAERS Safety Report 8612033-X (Version None)
Quarter: 2012Q3

REPORT INFORMATION
  Report Type: 
  Country: None (occurrence: None)
  Receive Date: 20120822
  Receipt Date: 20120815
  Transmission Date: 20120928
  Serious: Yes (Death, Other)
  Sender: FDA-Public Use
  Company Number: GB-ALEXION PHARMACEUTICALS INC.-A201201535

PATIENT
  Sex: Female

DRUGS (2)
  1. SOLIRIS [Suspect]
     Indication: HAEMOLYTIC URAEMIC SYNDROME
     Dosage: 600 MG, SINGLE
     Route: 042
     Dates: start: 20120810, end: 20120810
  2. ANTIBIOTICS [Concomitant]
     Indication: INFECTION PROPHYLAXIS

REACTIONS (7)
  - CEREBRAL INFARCTION [None]
  - ESCHERICHIA INFECTION [None]
  - BRADYCARDIA [None]
  - HAEMOLYTIC URAEMIC SYNDROME [None]
  - CONDITION AGGRAVATED [None]
  - INTRACRANIAL PRESSURE INCREASED [None]
  - PUPIL FIXED [None]
